FAERS Safety Report 4380720-8 (Version None)
Quarter: 2004Q2

REPORT INFORMATION
  Report Type: 
  Country: None (occurrence: None)
  Receive Date: 20040616
  Receipt Date: 20040610
  Transmission Date: 20050107
  Serious: Yes (Death, Hospitalization)
  Sender: FDA-Public Use
  Company Number: 2004UW12131

PATIENT
  Sex: Female

DRUGS (2)
  1. IRESSA [Suspect]
  2. BLOOD THINNER [Concomitant]

REACTIONS (2)
  - DYSPHAGIA [None]
  - HAEMATEMESIS [None]
